FAERS Safety Report 5624304-X (Version None)
Quarter: 2008Q1

REPORT INFORMATION
  Report Type: 
  Country: None (occurrence: None)
  Receive Date: 20080213
  Receipt Date: 20080131
  Transmission Date: 20080703
  Serious: Yes (Hospitalization)
  Sender: FDA-Public Use
  Company Number: FI-ELI_LILLY_AND_COMPANY-FI200711000150

PATIENT
  Sex: Female
  Weight: 76 kg

DRUGS (5)
  1. GEMCITABINE HCL [Suspect]
     Indication: NON-SMALL CELL LUNG CANCER
     Dosage: 1800 MG, D1,8, 15 IN 28 DAY CYCLE
     Route: 042
     Dates: start: 20070419, end: 20070528
  2. OPTINATE SEPTIMUM [Concomitant]
  3. SIMVASTATIN-RATIOPHARM [Concomitant]
  4. PRIMASPAN [Concomitant]
  5. ZOPINOX [Concomitant]

REACTIONS (1)
  - ERYSIPELAS [None]
